FAERS Safety Report 9810769 (Version 3)
Quarter: 2014Q4

REPORT INFORMATION
  Report Type: Spontaneous
  Country: US (occurrence: US)
  Receive Date: 20140110
  Receipt Date: 20141229
  Transmission Date: 20150529
  Serious: Yes (Hospitalization)
  Sender: FDA-Public Use
  Company Number: US-SANOFI-AVENTIS-2013SA001246

PATIENT
  Age: 54 Year
  Sex: Male
  Weight: 77 kg

DRUGS (20)
  1. ASPIRIN. [Concomitant]
     Active Substance: ASPIRIN
  2. LASIX [Concomitant]
     Active Substance: FUROSEMIDE
  3. TOPROL XL [Concomitant]
     Active Substance: METOPROLOL SUCCINATE
     Dates: start: 201001
  4. ATENOLOL. [Concomitant]
     Active Substance: ATENOLOL
     Route: 048
  5. METOPROLOL SUCCINATE. [Concomitant]
     Active Substance: METOPROLOL SUCCINATE
     Dosage: 100 MG 1 1/2 TABLET
     Route: 048
  6. INSULIN [Concomitant]
     Active Substance: INSULIN NOS
  7. VITAMIN D [Concomitant]
     Active Substance: CHOLECALCIFEROL
  8. PEPCID [Concomitant]
     Active Substance: FAMOTIDINE
     Route: 048
  9. HUMALOG [Concomitant]
     Active Substance: INSULIN LISPRO
     Dosage: DOSE:10 UNIT(S)
  10. ZESTRIL [Concomitant]
     Active Substance: LISINOPRIL
     Dates: start: 201001
  11. ZEMPLAR [Concomitant]
     Active Substance: PARICALCITOL
     Route: 048
  12. ZOCOR [Concomitant]
     Active Substance: SIMVASTATIN
     Dates: start: 201001
  13. ARANESP [Concomitant]
     Active Substance: DARBEPOETIN ALFA
  14. PLAVIX [Suspect]
     Active Substance: CLOPIDOGREL BISULFATE
     Indication: PROPHYLAXIS
     Route: 048
     Dates: start: 20091110, end: 20091210
  15. PLAVIX [Suspect]
     Active Substance: CLOPIDOGREL BISULFATE
     Indication: ACUTE CORONARY SYNDROME
     Route: 048
     Dates: start: 20091110, end: 20091210
  16. RAMIPRIL. [Concomitant]
     Active Substance: RAMIPRIL
  17. SIMVASTATIN. [Concomitant]
     Active Substance: SIMVASTATIN
     Route: 048
  18. SENNA [Concomitant]
     Active Substance: SENNA LEAF\SENNOSIDES\SENNOSIDES A AND B
     Route: 048
  19. KEPPRA [Concomitant]
     Active Substance: LEVETIRACETAM
     Route: 048
     Dates: start: 201001
  20. AMLODIPINE [Concomitant]
     Active Substance: AMLODIPINE BESYLATE
     Route: 048

REACTIONS (5)
  - Speech disorder [Recovered/Resolved]
  - Asthenia [Recovered/Resolved]
  - Confusional state [Recovered/Resolved]
  - Cerebral haemorrhage [Recovered/Resolved]
  - Mental impairment [Recovered/Resolved]

NARRATIVE: CASE EVENT DATE: 20100111
